FAERS Safety Report 4866384-5 (Version None)
Quarter: 2005Q4

REPORT INFORMATION
  Report Type: 
  Country: None (occurrence: None)
  Receive Date: 20051227
  Receipt Date: 20050304
  Transmission Date: 20060501
  Serious: Yes (Hospitalization, Disabling, Other)
  Sender: FDA-Public Use
  Company Number: US-MERCK-0503USA01057

PATIENT
  Age: 60 Year
  Sex: Male
  Weight: 91 kg

DRUGS (27)
  1. VIOXX [Suspect]
     Indication: ARTHRITIS
     Route: 048
     Dates: start: 20020901, end: 20040801
  2. [THERAPY UNSPECIFIED] [Concomitant]
     Route: 065
  3. PRILOSEC [Concomitant]
     Route: 065
  4. AMOXICILLIN [Concomitant]
     Route: 065
  5. SONATA [Concomitant]
     Route: 065
  6. ZITHROMAX [Concomitant]
     Route: 065
  7. CARISOPRODOL [Concomitant]
     Route: 065
  8. OXYCONTIN [Concomitant]
     Route: 065
  9. SYNTHROID [Concomitant]
     Route: 065
  10. AVANDIA [Concomitant]
     Route: 065
  11. LIPITOR [Concomitant]
     Route: 065
  12. METFORMIN [Concomitant]
     Route: 065
  13. FLEXERIL [Concomitant]
     Route: 048
  14. METOCLOPRAMIDE [Concomitant]
     Route: 065
  15. SKELAXIN [Concomitant]
     Route: 065
  16. [THERAPY UNSPECIFIED] [Concomitant]
     Route: 065
  17. DIAZEPAM [Concomitant]
     Route: 065
  18. AMITRIPTYLINE HYDROCHLORIDE [Concomitant]
     Route: 065
  19. NEXIUM [Concomitant]
     Route: 065
  20. NIASPAN [Concomitant]
     Route: 065
  21. WELLBUTRIN [Concomitant]
     Route: 065
  22. [THERAPY UNSPECIFIED] [Concomitant]
     Route: 065
  23. AMBIEN [Concomitant]
     Route: 065
  24. ACETAMINOPHEN [Concomitant]
     Route: 065
  25. TRAZODONE HYDROCHLORIDE [Concomitant]
     Route: 065
  26. NITROQUICK [Concomitant]
     Route: 065
  27. DURAGESIC-100 [Concomitant]
     Route: 065

REACTIONS (4)
  - ARTHROPATHY [None]
  - CARDIAC DISORDER [None]
  - MYOCARDIAL INFARCTION [None]
  - POLYTRAUMATISM [None]
